FAERS Safety Report 14576030 (Version 2)
Quarter: 2018Q4

REPORT INFORMATION
  Report Type: Report from Study
  Country: DE (occurrence: DE)
  Receive Date: 20180227
  Receipt Date: 20181030
  Transmission Date: 20190204
  Serious: Yes (Hospitalization)
  Sender: FDA-Public Use
  Company Number: DE-ROCHE-2076066

PATIENT
  Age: 82 Year
  Sex: Female

DRUGS (3)
  1. VOLTAREN RESINAT [Concomitant]
     Active Substance: DICLOFENAC
     Route: 065
  2. RITUXIMAB. [Suspect]
     Active Substance: RITUXIMAB
     Indication: RHEUMATOID ARTHRITIS
     Dosage: DATE OF LAST RITUXIMAB ON 10/OCT/2017
     Route: 042
     Dates: start: 20170411
  3. DECORTIN [Concomitant]
     Active Substance: PREDNISONE
     Route: 065

REACTIONS (1)
  - Transient ischaemic attack [Recovered/Resolved]

NARRATIVE: CASE EVENT DATE: 20171010
